FAERS Safety Report 24893449 (Version 1)
Quarter: 2025Q1

REPORT INFORMATION
  Report Type: Spontaneous
  Country: US (occurrence: None)
  Receive Date: 20250128
  Receipt Date: 20250128
  Transmission Date: 20250408
  Serious: Yes (Hospitalization, Other)
  Sender: UNICHEM
  Company Number: US-Unichem Pharmaceuticals (USA) Inc-UCM202501-000107

PATIENT
  Age: 44 Year
  Sex: Male

DRUGS (7)
  1. QUETIAPINE [Suspect]
     Active Substance: QUETIAPINE
     Indication: Psychotic symptom
  2. FLUOXETINE [Concomitant]
     Active Substance: FLUOXETINE HYDROCHLORIDE
     Indication: Psychotic symptom
  3. DEXTROAMPHETAMINE [Concomitant]
     Active Substance: DEXTROAMPHETAMINE
     Indication: Psychotic symptom
  4. LORAZEPAM [Concomitant]
     Active Substance: LORAZEPAM
     Indication: Agitation
  5. DANTROLENE [Concomitant]
     Active Substance: DANTROLENE
     Indication: Body temperature abnormal
  6. DANTROLENE [Concomitant]
     Active Substance: DANTROLENE
     Indication: Muscle rigidity
  7. DANTROLENE [Concomitant]
     Active Substance: DANTROLENE
     Indication: Hepatic enzyme increased

REACTIONS (8)
  - Metabolic acidosis [Recovered/Resolved]
  - Hyperkalaemia [Recovered/Resolved]
  - Depressed level of consciousness [Recovered/Resolved]
  - Neuroleptic malignant syndrome [Recovered/Resolved]
  - Tachycardia [Recovered/Resolved]
  - Hyperresponsive to stimuli [Recovered/Resolved]
  - Suicide attempt [Unknown]
  - Intentional overdose [Unknown]
